FAERS Safety Report 19001532 (Version 2)
Quarter: 2021Q1

REPORT INFORMATION
  Report Type: Spontaneous
  Country: US (occurrence: US)
  Receive Date: 20210312
  Receipt Date: 20210315
  Transmission Date: 20210420
  Serious: No
  Sender: FDA-Public Use
  Company Number: US-FARMAPROD-202007-0996

PATIENT
  Sex: Female
  Weight: 61.6 kg

DRUGS (9)
  1. OXERVATE [Suspect]
     Active Substance: CENEGERMIN-BKBJ
     Indication: NEUROTROPHIC KERATOPATHY
     Route: 047
     Dates: start: 20200611, end: 20200806
  2. OXERVATE [Suspect]
     Active Substance: CENEGERMIN-BKBJ
     Route: 047
     Dates: start: 20201103
  3. PREDNISOLONE ACETATE. [Concomitant]
     Active Substance: PREDNISOLONE ACETATE
  4. CALCIUM [Concomitant]
     Active Substance: CALCIUM
     Dosage: 500 (1250) MG
  5. ASPIRINE [Concomitant]
     Active Substance: ASPIRIN
  6. MULTIVITAMINES [Concomitant]
     Active Substance: VITAMINS
  7. HYDROXYUREA. [Concomitant]
     Active Substance: HYDROXYUREA
  8. ACICLOVIR [Concomitant]
     Active Substance: ACYCLOVIR
  9. VALSARTAN. [Concomitant]
     Active Substance: VALSARTAN

REACTIONS (3)
  - Eye pain [Unknown]
  - Lacrimation increased [Unknown]
  - Photophobia [Unknown]
